FAERS Safety Report 22248944 (Version 1)
Quarter: 2023Q2

REPORT INFORMATION
  Report Type: Spontaneous
  Country: DE (occurrence: DE)
  Receive Date: 20230425
  Receipt Date: 20230425
  Transmission Date: 20230722
  Serious: No
  Sender: FDA-Public Use
  Company Number: DE-ALKEM LABORATORIES LIMITED-DE-ALKEM-2023-00012

PATIENT
  Age: 47 Year
  Sex: Female
  Weight: 65 kg

DRUGS (13)
  1. FINGOLIMOD [Suspect]
     Active Substance: FINGOLIMOD
     Indication: Relapsing-remitting multiple sclerosis
     Dosage: 0.56 MILLIGRAM
     Route: 048
     Dates: start: 20200414
  2. BACLOFEN [Concomitant]
     Active Substance: BACLOFEN
     Indication: Muscle spasticity
     Dosage: 10 MILLIGRAM, BID
     Route: 048
     Dates: start: 20190225
  3. CANDESARTAN [Concomitant]
     Active Substance: CANDESARTAN
     Indication: Hypertension
     Dosage: UNK
     Route: 048
     Dates: start: 201906
  4. COMIRNATY [Concomitant]
     Active Substance: TOZINAMERAN
     Indication: COVID-19 immunisation
     Dosage: 0.3 MILLILITER
     Route: 030
     Dates: start: 20210701, end: 20210701
  5. COMIRNATY [Concomitant]
     Active Substance: TOZINAMERAN
     Dosage: 0.3 MILLILITER
     Route: 030
     Dates: start: 20210520, end: 20210520
  6. DOXEPIN [Concomitant]
     Active Substance: DOXEPIN
     Indication: Sleep disorder
     Dosage: 10 MILLIGRAM, QD
     Route: 048
     Dates: start: 202010, end: 202101
  7. Fluxoetine [Concomitant]
     Indication: Depression
     Dosage: 7.5 MILLIGRAM, PRN
     Route: 048
     Dates: start: 20190829
  8. IBUPROFEN [Concomitant]
     Active Substance: IBUPROFEN
     Indication: Pain
     Dosage: 400 MILLIGRAM, HS
     Route: 048
     Dates: start: 2004
  9. PROMETHAZINE [Concomitant]
     Active Substance: PROMETHAZINE HYDROCHLORIDE
     Indication: Sleep disorder
     Dosage: 22.6 MILLIGRAM
     Route: 048
     Dates: start: 202101, end: 202102
  10. NABIXIMOLS [Concomitant]
     Active Substance: NABIXIMOLS
     Indication: Muscle spasticity
     Dosage: 10 MILLILITER, (7 AS NECESSARY)
     Route: 048
     Dates: start: 20190225
  11. LEVOTHYROXINE [Concomitant]
     Active Substance: LEVOTHYROXINE
     Indication: Hypothyroidism
     Dosage: 50 MILLIGRAM
     Route: 048
     Dates: start: 2014
  12. VENLAFAXINE [Concomitant]
     Active Substance: VENLAFAXINE HYDROCHLORIDE
     Indication: Depression
     Dosage: 75 MILLIGRAM, QD
     Route: 048
     Dates: start: 20200507
  13. VENLAFAXINE [Concomitant]
     Active Substance: VENLAFAXINE HYDROCHLORIDE
     Dosage: 150 MILLIGRAM, QD
     Route: 048
     Dates: start: 20200604

REACTIONS (1)
  - Pulpitis dental [Recovered/Resolved]

NARRATIVE: CASE EVENT DATE: 20220701
